FAERS Safety Report 9201156 (Version 2)
Quarter: 2013Q2

REPORT INFORMATION
  Report Type: Spontaneous
  Country: US (occurrence: US)
  Receive Date: 20130401
  Receipt Date: 20130522
  Transmission Date: 20140414
  Serious: No
  Sender: FDA-Public Use
  Company Number: US-PFIZER INC-2013100996

PATIENT
  Age: 44 Year
  Sex: Female
  Weight: 58.96 kg

DRUGS (1)
  1. ADVIL PM [Suspect]
     Dosage: UNK
     Route: 048
     Dates: start: 201303, end: 201303

REACTIONS (3)
  - Restlessness [Recovered/Resolved]
  - Insomnia [Recovered/Resolved]
  - Vertigo [Recovered/Resolved]
